FAERS Safety Report 4602725-1 (Version None)
Quarter: 2005Q1

REPORT INFORMATION
  Report Type: 
  Country: None (occurrence: None)
  Receive Date: 20050307
  Receipt Date: 20050218
  Transmission Date: 20050727
  Serious: Yes (Death, Life-Threatening, Hospitalization, Other)
  Sender: FDA-Public Use
  Company Number: 2005022172

PATIENT
  Age: 28 Year
  Sex: Female
  Weight: 44 kg

DRUGS (3)
  1. PRODIF (FOSFLUCONAZOLE) [Suspect]
     Indication: FUNGAL INFECTION
     Dosage: 504.5 MG (504.5 MG, 1 D), INTRAVENOUS
     Route: 042
     Dates: start: 20041218, end: 20050123
  2. MIZORIBINE (MIZORIBINE) [Suspect]
     Indication: SJOGREN'S SYNDROME
     Dosage: (3 IN 1 D), ORAL
     Route: 048
     Dates: start: 20041115, end: 20050108
  3. BACTRIM [Suspect]
     Indication: PNEUMOCYSTIS JIROVECI PNEUMONIA
     Dosage: (3 IN 1 D), INTRAVENOUS
     Route: 042
     Dates: start: 20050122, end: 20050205

REACTIONS (9)
  - AGRANULOCYTOSIS [None]
  - CONDITION AGGRAVATED [None]
  - DISSEMINATED INTRAVASCULAR COAGULATION [None]
  - HAEMODIALYSIS [None]
  - HEPATIC FAILURE [None]
  - MALAISE [None]
  - PNEUMOCYSTIS JIROVECI PNEUMONIA [None]
  - POST PROCEDURAL COMPLICATION [None]
  - SMALL INTESTINAL ULCER HAEMORRHAGE [None]
